FAERS Safety Report 21248348 (Version 1)
Quarter: 2022Q3

REPORT INFORMATION
  Report Type: Spontaneous
  Country: RU (occurrence: RU)
  Receive Date: 20220824
  Receipt Date: 20220824
  Transmission Date: 20221027
  Serious: Yes (Hospitalization, Other)
  Sender: FDA-Public Use
  Company Number: RU-PFIZER INC-PV202200045714

PATIENT
  Age: 69 Year
  Sex: Female

DRUGS (2)
  1. NEURONTIN [Suspect]
     Active Substance: GABAPENTIN
     Indication: Neuralgia
     Dosage: TITRATION PER SCHEME UP TO 1800 MG/DAILY
  2. NEURONTIN [Suspect]
     Active Substance: GABAPENTIN
     Dosage: 1800 MG, DAILY

REACTIONS (9)
  - Urinary retention [Unknown]
  - Pyrexia [Unknown]
  - Cough [Unknown]
  - Myalgia [Unknown]
  - Respiratory tract infection [Unknown]
  - Paraesthesia [Unknown]
  - Muscle spasms [Unknown]
  - Asthenia [Unknown]
  - Dyspepsia [Unknown]
